FAERS Safety Report 8492404-5 (Version None)
Quarter: 2012Q3

REPORT INFORMATION
  Report Type: 
  Country: None (occurrence: None)
  Receive Date: 20120706
  Receipt Date: 20120625
  Transmission Date: 20120928
  Serious: Yes (Hospitalization, Other)
  Sender: FDA-Public Use
  Company Number: AU-ROCHE-1065127

PATIENT
  Sex: Female

DRUGS (4)
  1. LUCENTIS [Suspect]
     Indication: PRODUCT USED FOR UNKNOWN INDICATION
     Route: 050
     Dates: start: 20111201
  2. LUCENTIS [Suspect]
     Route: 050
     Dates: start: 20120201
  3. LUCENTIS [Suspect]
     Route: 050
     Dates: start: 20120301
  4. LUCENTIS [Suspect]
     Route: 050
     Dates: start: 20120501

REACTIONS (7)
  - OCULAR DISCOMFORT [None]
  - DRY MOUTH [None]
  - EYE IRRITATION [None]
  - DRY EYE [None]
  - COLONIC POLYP [None]
  - RETINAL PIGMENT EPITHELIAL TEAR [None]
  - EYELID CYST [None]
